FAERS Safety Report 7012666-0 (Version None)
Quarter: 2010Q3

REPORT INFORMATION
  Report Type: 
  Country: None (occurrence: None)
  Receive Date: 20100924
  Receipt Date: 20100915
  Transmission Date: 20110219
  Serious: Yes (Hospitalization)
  Sender: FDA-Public Use
  Company Number: B0674700A

PATIENT
  Sex: Female

DRUGS (3)
  1. NIQUITIN CQ CLEAR 14MG [Suspect]
     Indication: PRODUCT USED FOR UNKNOWN INDICATION
     Route: 062
  2. NIQUITIN CQ 2MG LOZENGE, MINT [Suspect]
     Indication: PRODUCT USED FOR UNKNOWN INDICATION
     Route: 002
  3. NIQUITIN CQ GUM 4MG [Suspect]
     Indication: PRODUCT USED FOR UNKNOWN INDICATION
     Route: 002

REACTIONS (6)
  - ARTHRALGIA [None]
  - MALAISE [None]
  - MYALGIA [None]
  - PALPITATIONS [None]
  - TREMOR [None]
  - URINARY TRACT INFECTION [None]
